FAERS Safety Report 14236291 (Version 1)
Quarter: 2017Q4

REPORT INFORMATION
  Report Type: Report from Study
  Country: KR (occurrence: KR)
  Receive Date: 20171129
  Receipt Date: 20171129
  Transmission Date: 20180321
  Serious: Yes (Death, Other)
  Sender: FDA-Public Use
  Company Number: KR-MYLANLABS-2017M1074854

PATIENT
  Age: 3 Year
  Sex: Male

DRUGS (6)
  1. CISPLATIN. [Suspect]
     Active Substance: CISPLATIN
     Indication: ATYPICAL TERATOID/RHABDOID TUMOUR OF CNS
     Dosage: PART OF REGIMEN-A CONVENTIONAL CHEMOTHERAPY; 1 CYCLE PRIOR AND 2 CYCLES POST-RADIOTHERAPY
     Route: 065
  2. VINCRISTINE [Suspect]
     Active Substance: VINCRISTINE
     Indication: ATYPICAL TERATOID/RHABDOID TUMOUR OF CNS
     Dosage: PART OF REGIMEN-A AND B CONVENTIONAL CHEMOTHERAPY; 2 CYCLES PRIOR AND 4 CYCLES POST-RADIOTHERAPY
     Route: 065
  3. IFOSFAMIDE. [Suspect]
     Active Substance: IFOSFAMIDE
     Indication: ATYPICAL TERATOID/RHABDOID TUMOUR OF CNS
     Dosage: PART OF REGIMEN-B CONVENTIONAL CHEMOTHERAPY; 1 CYCLE PRIOR AND 2 CYCLES POST-RADIOTHERAPY
     Route: 065
  4. ETOPOSIDE. [Suspect]
     Active Substance: ETOPOSIDE
     Indication: ATYPICAL TERATOID/RHABDOID TUMOUR OF CNS
     Dosage: PART OF REGIMEN-A AND B CONVENTIONAL CHEMOTHERAPY; 2 CYCLES PRIOR AND 4 CYCLES POST-RADIOTHERAPY
     Route: 065
  5. CARBOPLATIN. [Suspect]
     Active Substance: CARBOPLATIN
     Indication: ATYPICAL TERATOID/RHABDOID TUMOUR OF CNS
     Dosage: PART OF REGIMEN-B CONVENTIONAL CHEMOTHERAPY; 1 CYCLE PRIOR AND 2 CYCLES POST-RADIOTHERAPY
     Route: 065
  6. CYCLOPHOSPHAMIDE. [Suspect]
     Active Substance: CYCLOPHOSPHAMIDE
     Indication: ATYPICAL TERATOID/RHABDOID TUMOUR OF CNS
     Dosage: PART OF REGIMEN-A CONVENTIONAL CHEMOTHERAPY; 1 CYCLE PRIOR AND 2 CYCLES POST-RADIOTHERAPY
     Route: 065

REACTIONS (2)
  - Bacterial infection [Fatal]
  - Sepsis [Fatal]
